FAERS Safety Report 4519322-9 (Version None)
Quarter: 2004Q4

REPORT INFORMATION
  Report Type: 
  Country: None (occurrence: None)
  Receive Date: 20041206
  Receipt Date: 20041125
  Transmission Date: 20050328
  Serious: Yes (Disabling)
  Sender: FDA-Public Use
  Company Number: FR-GLAXOSMITHKLINE-B0358719A

PATIENT
  Age: 44 Year
  Sex: Female

DRUGS (4)
  1. DEROXAT [Suspect]
     Indication: DEPRESSION
     Dosage: 20MG PER DAY
     Route: 048
     Dates: start: 20041120, end: 20041120
  2. TERCIAN [Suspect]
     Dosage: 10DROP PER DAY
     Route: 048
  3. LEVOTHYROX [Concomitant]
     Dosage: 75MCG PER DAY
     Route: 048
  4. BIPROFENID [Concomitant]
     Route: 048

REACTIONS (10)
  - DRUG INTERACTION [None]
  - DYSSTASIA [None]
  - FATIGUE [None]
  - FOOD AVERSION [None]
  - HEADACHE [None]
  - HYPOTENSION [None]
  - MALAISE [None]
  - PALLOR [None]
  - SKIN BURNING SENSATION [None]
  - VOMITING [None]
